FAERS Safety Report 13426978 (Version 1)
Quarter: 2017Q2

REPORT INFORMATION
  Report Type: Spontaneous
  Country: BR (occurrence: BR)
  Receive Date: 20170411
  Receipt Date: 20170411
  Transmission Date: 20170830
  Serious: Yes (Other)
  Sender: FDA-Public Use
  Company Number: BR-TORRENT-00003954

PATIENT
  Age: 51 Year
  Sex: Female
  Weight: 63 kg

DRUGS (3)
  1. LAMITOR [Suspect]
     Active Substance: LAMOTRIGINE
  2. FRISIUM [Concomitant]
     Active Substance: CLOBAZAM
  3. GARDENAL [Concomitant]
     Active Substance: PHENOBARBITAL

REACTIONS (4)
  - Petit mal epilepsy [Recovered/Resolved]
  - Tremor [Not Recovered/Not Resolved]
  - Food interaction [Unknown]
  - Nausea [Not Recovered/Not Resolved]

NARRATIVE: CASE EVENT DATE: 201701
